FAERS Safety Report 6999464-9 (Version None)
Quarter: 2010Q3

REPORT INFORMATION
  Report Type: 
  Country: None (occurrence: None)
  Receive Date: 20100920
  Receipt Date: 20080513
  Transmission Date: 20110219
  Serious: Yes (Other)
  Sender: FDA-Public Use
  Company Number: US-ASTRAZENECA-2008UW04304

PATIENT
  Age: 14149 Day
  Sex: Male
  Weight: 102.1 kg

DRUGS (10)
  1. SEROQUEL [Suspect]
     Indication: SCHIZOPHRENIA
     Dosage: 100 MG TO 400 MG
     Route: 048
     Dates: start: 20050113
  2. SEROQUEL [Suspect]
     Dosage: 100 MG TO 200 MG
     Route: 048
     Dates: start: 20050127, end: 20050930
  3. RISPERDAL [Concomitant]
     Dosage: 2 MG TO 4 MG
     Dates: start: 20050113
  4. METFORMIN [Concomitant]
     Dates: start: 20050722
  5. NEXIUM [Concomitant]
     Dates: start: 20050817
  6. ABILIFY [Concomitant]
     Dosage: 10 MG TO 30 MG
     Dates: start: 20050907
  7. LEXAPRO [Concomitant]
     Dosage: 15 MG TO 30 MG
     Dates: start: 20050113
  8. COGENTIN/BENZTROPIN MES [Concomitant]
     Dosage: 1 MG TO 4 MG
     Dates: start: 20020123
  9. GEMFIBROZIL [Concomitant]
     Dosage: 600 MG DISPENSED
     Dates: start: 20050722
  10. NAPROXEN [Concomitant]
     Dosage: 500 MG DISPENSED
     Dates: start: 20050722

REACTIONS (4)
  - BLOOD GLUCOSE INCREASED [None]
  - DIABETES MELLITUS [None]
  - GLYCOSYLATED HAEMOGLOBIN INCREASED [None]
  - TYPE 2 DIABETES MELLITUS [None]
